FAERS Safety Report 23760012 (Version 3)
Quarter: 2024Q4

REPORT INFORMATION
  Report Type: Report from Study
  Country: GB (occurrence: GB)
  Receive Date: 20240419
  Receipt Date: 20241219
  Transmission Date: 20250115
  Serious: Yes (Hospitalization, Other)
  Sender: ROCHE
  Company Number: GB-ROCHE-3422106

PATIENT
  Age: 69 Year
  Sex: Female

DRUGS (1)
  1. TOCILIZUMAB [Suspect]
     Active Substance: TOCILIZUMAB
     Indication: Product used for unknown indication
     Route: 058
     Dates: start: 20230216

REACTIONS (7)
  - Bedridden [Unknown]
  - Ill-defined disorder [Unknown]
  - Malaise [Unknown]
  - Cough [Unknown]
  - Arthropathy [Unknown]
  - Cerebrovascular accident [Unknown]
  - Hypertension [Unknown]
